FAERS Safety Report 7766809-1 (Version None)
Quarter: 2011Q3

REPORT INFORMATION
  Report Type: 
  Country: None (occurrence: None)
  Receive Date: 20110922
  Receipt Date: 20110510
  Transmission Date: 20111222
  Serious: No
  Sender: FDA-Public Use
  Company Number: US-ASTRAZENECA-2011SE28253

PATIENT
  Sex: Female

DRUGS (1)
  1. SEROQUEL XR [Suspect]
     Indication: SLEEP DISORDER
     Route: 048
     Dates: start: 20110508, end: 20110508

REACTIONS (5)
  - ADVERSE EVENT [None]
  - OFF LABEL USE [None]
  - ABNORMAL SENSATION IN EYE [None]
  - FEELING ABNORMAL [None]
  - DRUG HYPERSENSITIVITY [None]
